FAERS Safety Report 8454101-1 (Version None)
Quarter: 2012Q2

REPORT INFORMATION
  Report Type: 
  Country: None (occurrence: None)
  Receive Date: 20120620
  Receipt Date: 20120612
  Transmission Date: 20120825
  Serious: Yes (Hospitalization, Other)
  Sender: FDA-Public Use
  Company Number: PHEH2012US009353

PATIENT
  Age: 63 Year
  Sex: Female
  Weight: 71.202 kg

DRUGS (11)
  1. ARTHROTEC [Concomitant]
     Dosage: 75-0.2 MG
     Route: 048
  2. VIBRA-TABS [Concomitant]
     Dosage: 1 DF, BID
     Route: 048
  3. CYANOCOBALAMIN [Concomitant]
     Dosage: 1 DF, QD
     Route: 048
  4. NORVASC [Concomitant]
     Dosage: 1 DF, QD
     Route: 048
  5. PREMARIN [Concomitant]
     Dosage: 1 DF, QD
     Route: 048
  6. ENABLEX [Concomitant]
     Dosage: 1 DF, QD
     Route: 048
  7. GILENYA [Suspect]
     Indication: RELAPSING-REMITTING MULTIPLE SCLEROSIS
     Dosage: 0.5 MG, QD
     Route: 048
     Dates: start: 20110301, end: 20120401
  8. RESTASIS [Concomitant]
     Dosage: 1 DRP IN BOTH EYES, BID
  9. INDERAL [Suspect]
  10. CALCIUM WITH VITAMIN D [Concomitant]
     Dosage: 1 DF, QD
     Route: 048
  11. ARTIFICIAL TEARS [Concomitant]
     Dosage: 1 DRP INTO BOTH EYES, BID

REACTIONS (14)
  - EOSINOPHIL COUNT INCREASED [None]
  - VISUAL ACUITY REDUCED [None]
  - HYPOTENSION [None]
  - BLOOD GLUCOSE INCREASED [None]
  - PYREXIA [None]
  - NIGHT SWEATS [None]
  - ALANINE AMINOTRANSFERASE INCREASED [None]
  - METASTASES TO LUNG [None]
  - RENAL CELL CARCINOMA STAGE IV [None]
  - RED CELL DISTRIBUTION WIDTH INCREASED [None]
  - HYPERHIDROSIS [None]
  - WEIGHT DECREASED [None]
  - METASTASES TO BONE [None]
  - WHITE BLOOD CELL COUNT DECREASED [None]
